FAERS Safety Report 21014775 (Version 1)
Quarter: 2022Q2

REPORT INFORMATION
  Report Type: Spontaneous
  Country: US (occurrence: US)
  Receive Date: 20220628
  Receipt Date: 20220628
  Transmission Date: 20220721
  Serious: Yes (Other)
  Sender: FDA-Public Use
  Company Number: US-SA-SAC20220623002142

PATIENT
  Age: 73 Year
  Sex: Female

DRUGS (1)
  1. ZANTAC [Suspect]
     Active Substance: RANITIDINE HYDROCHLORIDE
     Dosage: 150 MG, QD (STARTDATE:01/2000; ENDDATE:01/2013;)
     Dates: start: 200001, end: 201301

REACTIONS (2)
  - Breast cancer female [Unknown]
  - Uterine cancer [Unknown]

NARRATIVE: CASE EVENT DATE: 20180930
